FAERS Safety Report 7487015-4 (Version None)
Quarter: 2011Q2

REPORT INFORMATION
  Report Type: 
  Country: None (occurrence: None)
  Receive Date: 20110518
  Receipt Date: 20110513
  Transmission Date: 20111010
  Serious: Yes (Other)
  Sender: FDA-Public Use
  Company Number: SE-BRISTOL-MYERS SQUIBB COMPANY-15641202

PATIENT
  Age: 60 Year
  Sex: Female

DRUGS (9)
  1. ORENCIA [Suspect]
     Indication: RHEUMATOID ARTHRITIS
     Dosage: TOTAL:4 INFUSIONS
     Dates: start: 20110101, end: 20110401
  2. ATACAND [Concomitant]
  3. ATARAX [Concomitant]
  4. METHOTREXATE [Concomitant]
  5. ALVEDON [Concomitant]
  6. NEXIUM [Concomitant]
  7. AMLODIPINE BESYLATE [Concomitant]
  8. FOLACIN [Concomitant]
  9. CALCICHEW D3 [Concomitant]

REACTIONS (5)
  - GINGIVITIS [None]
  - DEPRESSION [None]
  - GINGIVAL BLEEDING [None]
  - EYE HAEMORRHAGE [None]
  - HYPERGLYCAEMIA [None]
